FAERS Safety Report 6722717-6 (Version None)
Quarter: 2010Q2

REPORT INFORMATION
  Report Type: 
  Country: None (occurrence: None)
  Receive Date: 20100512
  Receipt Date: 20100428
  Transmission Date: 20101027
  Serious: Yes (Other)
  Sender: FDA-Public Use
  Company Number: BR-GENENTECH-301291

PATIENT
  Sex: Female
  Weight: 68 kg

DRUGS (2)
  1. RITUXIMAB [Suspect]
     Indication: SYSTEMIC LUPUS ERYTHEMATOSUS
     Dosage: UNK
     Route: 042
     Dates: start: 20100419
  2. TYLENOL-500 [Concomitant]
     Indication: DRUG USE FOR UNKNOWN INDICATION
     Dosage: 750 MG, UNK

REACTIONS (6)
  - ALOPECIA [None]
  - DYSGEUSIA [None]
  - HAIR TEXTURE ABNORMAL [None]
  - HEADACHE [None]
  - HOT FLUSH [None]
  - SYNCOPE [None]
